FAERS Safety Report 4597586-3 (Version None)
Quarter: 2005Q1

REPORT INFORMATION
  Report Type: 
  Country: None (occurrence: None)
  Receive Date: 20050228
  Receipt Date: 20050228
  Transmission Date: 20050727
  Serious: Yes (Other)
  Sender: FDA-Public Use
  Company Number: None

PATIENT
  Sex: Female
  Weight: 56.6996 kg

DRUGS (1)
  1. DEPO-PROVERA [Suspect]
     Dosage: 150 MG ONE-TIME IM
     Route: 030
     Dates: start: 20041215, end: 20050315

REACTIONS (1)
  - ALOPECIA [None]
